FAERS Safety Report 4705749-9 (Version None)
Quarter: 2005Q2

REPORT INFORMATION
  Report Type: 
  Country: None (occurrence: None)
  Receive Date: 20050629
  Receipt Date: 20050617
  Transmission Date: 20051028
  Serious: Yes (Hospitalization)
  Sender: FDA-Public Use
  Company Number: DSA_26642_2005

PATIENT
  Sex: Female

DRUGS (1)
  1. ATIVAN [Suspect]
     Indication: MENTAL DISORDER
     Dosage: 1 MG BID PO
     Route: 048
     Dates: start: 19900101, end: 20050201

REACTIONS (6)
  - DEMENTIA [None]
  - DIABETES MELLITUS [None]
  - DIZZINESS [None]
  - DRUG SCREEN POSITIVE [None]
  - METABOLIC ENCEPHALOPATHY [None]
  - SOMNOLENCE [None]
